FAERS Safety Report 7945549-X (Version None)
Quarter: 2011Q4

REPORT INFORMATION
  Report Type: 
  Country: None (occurrence: None)
  Receive Date: 20111125
  Receipt Date: 20111116
  Transmission Date: 20120403
  Serious: Yes (Hospitalization)
  Sender: FDA-Public Use
  Company Number: DKLU1074873

PATIENT
  Age: 83 Year
  Sex: Female

DRUGS (14)
  1. CALCIPARINE [Suspect]
     Indication: PRODUCT USED FOR UNKNOWN INDICATION
     Dosage: 2 IN 1 D, SUBCUTANEOUS
     Route: 058
     Dates: start: 20110627, end: 20110704
  2. PROPRANOLOL [Concomitant]
  3. OXAZEPAM [Concomitant]
  4. LORMETAZEPAM [Concomitant]
  5. MIANSERINE (MIANSERIN HYDROCHLORIDE) [Concomitant]
  6. KEPPRA [Suspect]
     Indication: PRODUCT USED FOR UNKNOWN INDICATION
     Dosage: 500 MG MILLIGRAM(S), 2 IN 1 D, INTRAVENOUS (NOT OTHERWISE SPECIFIED)
     Route: 042
     Dates: start: 20110630, end: 20110712
  7. NOVOLOG [Suspect]
     Indication: PRODUCT USED FOR UNKNOWN INDICATION
     Dosage: 1 IN 1 D, SUBCUTANEOUS
     Route: 058
     Dates: start: 20110701, end: 20110704
  8. ALDACTONE [Concomitant]
  9. ONFI [Suspect]
     Indication: STATUS EPILEPTICUS
     Dosage: 10 MG MILLIGRAM(S), 1 IN 1 D, ORAL
     Route: 048
     Dates: start: 20110627
  10. INSULIN [Suspect]
     Indication: PRODUCT USED FOR UNKNOWN INDICATION
     Dosage: 1 IN 1 D, SUBCUTANEOUS
     Route: 058
     Dates: start: 20110630, end: 20110704
  11. PANTOPRAZOLE [Concomitant]
  12. DIFFU K (POTASSIUM CHLORIDE0 [Concomitant]
  13. ACETAMINOPHEN [Suspect]
     Indication: PAIN
     Dosage: 1 G GRAM(S), 3 IN 1 D, ORAL
     Route: 048
     Dates: start: 20110702, end: 20110712
  14. FUROSEMIDE [Concomitant]

REACTIONS (3)
  - CONDITION AGGRAVATED [None]
  - CHOLESTASIS [None]
  - HEPATIC CIRRHOSIS [None]
